FAERS Safety Report 8248094-X (Version None)
Quarter: 2012Q1

REPORT INFORMATION
  Report Type: 
  Country: None (occurrence: None)
  Receive Date: 20120330
  Receipt Date: 20120320
  Transmission Date: 20120608
  Serious: Yes (Other)
  Sender: FDA-Public Use
  Company Number: US-JNJFOC-20120309812

PATIENT
  Sex: Female
  Weight: 60.78 kg

DRUGS (3)
  1. PROCRIT [Concomitant]
     Indication: BLOOD COUNT ABNORMAL
     Route: 065
     Dates: start: 20110101
  2. METOPROLOL SUCCINATE [Concomitant]
     Indication: ARRHYTHMIA PROPHYLAXIS
     Route: 048
     Dates: start: 20080101
  3. REMICADE [Suspect]
     Indication: PSORIASIS
     Route: 042
     Dates: start: 20110301

REACTIONS (12)
  - MYALGIA [None]
  - EAR INFECTION [None]
  - STAPHYLOCOCCAL INFECTION [None]
  - FEELING ABNORMAL [None]
  - RELAPSING FEVER [None]
  - BLOOD IMMUNOGLOBULIN G DECREASED [None]
  - FEELING COLD [None]
  - CLOSTRIDIAL INFECTION [None]
  - NAIL DISCOLOURATION [None]
  - INSOMNIA [None]
  - PERIPHERAL COLDNESS [None]
  - CONTRAINDICATION TO VACCINATION [None]
